FAERS Safety Report 9018391 (Version 1)
Quarter: 2013Q1

REPORT INFORMATION
  Report Type: Spontaneous
  Country: US (occurrence: None)
  Receive Date: 20130111
  Receipt Date: 20130111
  Transmission Date: 20140127
  Serious: Yes (Hospitalization)
  Sender: FDA-Public Use
  Company Number: None

PATIENT
  Age: 82 Year
  Sex: Female
  Weight: 49 kg

DRUGS (13)
  1. ALEVE [Suspect]
     Indication: OSTEOARTHRITIS
     Route: 048
  2. ASA [Suspect]
     Indication: CORONARY ARTERY DISEASE
     Route: 048
  3. COSOPT [Concomitant]
  4. VIT D [Concomitant]
  5. VITAMIN B12 [Concomitant]
  6. TRAVATAN [Concomitant]
  7. MVI [Concomitant]
  8. ALPHAGAN [Concomitant]
  9. PRESERVISION [Concomitant]
  10. KCL [Concomitant]
  11. PROBIOTIC [Concomitant]
  12. XANAX [Concomitant]
  13. PAXIL [Concomitant]

REACTIONS (2)
  - Gastrointestinal haemorrhage [None]
  - Duodenitis [None]
